FAERS Safety Report 6236441-X (Version None)
Quarter: 2009Q2

REPORT INFORMATION
  Report Type: 
  Country: None (occurrence: None)
  Receive Date: 20090619
  Receipt Date: 20090608
  Transmission Date: 20091009
  Serious: Yes (Other)
  Sender: FDA-Public Use
  Company Number: US-PFIZER INC-2009224718

PATIENT
  Age: 61 Year

DRUGS (20)
  1. DIFLUCAN [Suspect]
     Dosage: UNK
     Route: 048
  2. SULBACTAM SODIUM [Suspect]
     Route: 042
  3. TARGOCID [Suspect]
     Indication: STAPHYLOCOCCAL SEPSIS
     Dosage: UNK
     Route: 042
     Dates: start: 20090320
  4. OXINORM [Concomitant]
     Dosage: UNK
     Dates: start: 20090101, end: 20090409
  5. OXYCONTIN [Concomitant]
     Dosage: UNK
     Dates: end: 20090412
  6. GASTER [Concomitant]
  7. BACTRAMIN [Concomitant]
  8. MAINTATE [Concomitant]
  9. PANTOSIN [Concomitant]
  10. MAGNESIUM OXIDE [Concomitant]
  11. LENDORMIN [Concomitant]
  12. FULCALIQ [Concomitant]
     Dosage: UNK
     Dates: end: 20090330
  13. ZYVOX [Concomitant]
     Dosage: UNK
     Dates: end: 20090319
  14. DALACIN-S [Concomitant]
     Dosage: UNK
     Dates: end: 20090316
  15. LASIX [Concomitant]
     Dosage: UNK
     Dates: end: 20090402
  16. HANP [Concomitant]
     Dosage: UNK
     Dates: start: 20090322, end: 20090325
  17. PREDNISOLONE [Concomitant]
     Dosage: UNK
     Dates: start: 20090316, end: 20090406
  18. SAXIZON [Concomitant]
  19. CARBENIN [Concomitant]
     Dosage: UNK
     Dates: start: 20090330, end: 20090406
  20. OLOPATADINE HYDROCHLORIDE [Concomitant]
     Dosage: UNK
     Dates: end: 20090408

REACTIONS (1)
  - BLOOD BILIRUBIN INCREASED [None]
